FAERS Safety Report 7203974-9 (Version None)
Quarter: 2010Q4

REPORT INFORMATION
  Report Type: 
  Country: None (occurrence: None)
  Receive Date: 20101230
  Receipt Date: 20101220
  Transmission Date: 20110411
  Serious: Yes (Other)
  Sender: FDA-Public Use
  Company Number: GB-ELI_LILLY_AND_COMPANY-GB201010001950

PATIENT
  Sex: Male

DRUGS (4)
  1. ZYPADHERA [Suspect]
     Dosage: 300 MG, EVERY 2 WEEKS
     Route: 030
     Dates: start: 20100813
  2. OLANZAPINE [Concomitant]
     Dosage: 5 MG, UNK
     Route: 048
     Dates: start: 20101102
  3. OMACOR [Concomitant]
     Dosage: 4 D/F, UNK
     Route: 048
     Dates: start: 20100921
  4. CETIRIZINE HCL [Concomitant]
     Dosage: 10 MG, UNK
     Route: 048
     Dates: start: 20100608

REACTIONS (2)
  - MENTAL IMPAIRMENT [None]
  - PSYCHOTIC DISORDER [None]
